FAERS Safety Report 5316935-1 (Version None)
Quarter: 2007Q2

REPORT INFORMATION
  Report Type: 
  Country: None (occurrence: None)
  Receive Date: 20070504
  Receipt Date: 20070424
  Transmission Date: 20071010
  Serious: Yes (Hospitalization)
  Sender: FDA-Public Use
  Company Number: US-ELI_LILLY_AND_COMPANY-US200704005448

PATIENT
  Sex: Female

DRUGS (1)
  1. FORTEO [Suspect]

REACTIONS (6)
  - ARTHRALGIA [None]
  - CYSTITIS [None]
  - DIVERTICULITIS [None]
  - INTERVERTEBRAL DISC DISORDER [None]
  - MOVEMENT DISORDER [None]
  - PAIN IN EXTREMITY [None]
